FAERS Safety Report 11599588 (Version 1)
Quarter: 2015Q3

REPORT INFORMATION
  Report Type: Spontaneous
  Country: US (occurrence: US)
  Receive Date: 20150916
  Receipt Date: 20150916
  Transmission Date: 20151125
  Serious: No
  Sender: FDA-Public Use
  Company Number: US-ELI_LILLY_AND_COMPANY-US200710002912

PATIENT
  Age: 58 Year
  Sex: Female

DRUGS (7)
  1. FORTEO [Suspect]
     Active Substance: TERIPARATIDE
     Indication: OSTEOPOROSIS
     Dosage: UNK, UNK
     Dates: start: 20070601
  2. FORTEO [Suspect]
     Active Substance: TERIPARATIDE
     Dosage: UNK, UNK
  3. FORTEO [Suspect]
     Active Substance: TERIPARATIDE
     Dosage: UNK, UNK
  4. FORTEO [Suspect]
     Active Substance: TERIPARATIDE
  5. FORTEO [Suspect]
     Active Substance: TERIPARATIDE
     Dosage: UNK, UNK
  6. NEXIUM /USA/ [Concomitant]
     Dosage: 40 MG, UNK
  7. FORTEO [Suspect]
     Active Substance: TERIPARATIDE
     Dosage: UNKNOWN
     Dates: end: 2007

REACTIONS (9)
  - Injection site erythema [Not Recovered/Not Resolved]
  - Urticaria [Recovered/Resolved]
  - Eyelid oedema [Recovered/Resolved]
  - Pruritus [Not Recovered/Not Resolved]
  - Medial tibial stress syndrome [Not Recovered/Not Resolved]
  - Injection site pain [Not Recovered/Not Resolved]
  - Urticaria [Not Recovered/Not Resolved]
  - Scab [Not Recovered/Not Resolved]
  - Eyelid oedema [Not Recovered/Not Resolved]

NARRATIVE: CASE EVENT DATE: 2007
